FAERS Safety Report 8368140-2 (Version None)
Quarter: 2012Q2

REPORT INFORMATION
  Report Type: 
  Country: None (occurrence: None)
  Receive Date: 20120517
  Receipt Date: 20120508
  Transmission Date: 20120825
  Serious: Yes (Hospitalization, Other)
  Sender: FDA-Public Use
  Company Number: CA-B.I. PHARMACEUTICALS,INC./RIDGEFIELD-2011-CN-01740CN

PATIENT

DRUGS (2)
  1. MIRAPEX [Suspect]
     Indication: RESTLESS LEGS SYNDROME
     Dates: end: 20110515
  2. MIRAPEX [Suspect]
     Dates: end: 20110515

REACTIONS (5)
  - QUALITY OF LIFE DECREASED [None]
  - RENAL TRANSPLANT [None]
  - SUICIDE ATTEMPT [None]
  - GAMBLING [None]
  - COMPULSIVE SHOPPING [None]
